FAERS Safety Report 12647314 (Version 2)
Quarter: 2016Q3

REPORT INFORMATION
  Report Type: Spontaneous
  Country: CH (occurrence: CH)
  Receive Date: 20160812
  Receipt Date: 20160817
  Transmission Date: 20161109
  Serious: Yes (Other)
  Sender: FDA-Public Use
  Company Number: PHHY2016CH109364

PATIENT
  Sex: Female

DRUGS (2)
  1. HERCEPTIN [Concomitant]
     Active Substance: TRASTUZUMAB
     Indication: BREAST CANCER METASTATIC
     Route: 065
  2. GLIVEC [Suspect]
     Active Substance: IMATINIB MESYLATE
     Indication: GASTROINTESTINAL STROMAL TUMOUR
     Dosage: 100 MG, UNK
     Route: 065

REACTIONS (6)
  - Malignant neoplasm progression [Unknown]
  - Dry skin [Unknown]
  - Skin disorder [Recovering/Resolving]
  - Pruritus [Unknown]
  - Gastrointestinal stromal tumour [Unknown]
  - Pigmentation disorder [Recovering/Resolving]
